FAERS Safety Report 6288834-2 (Version None)
Quarter: 2009Q3

REPORT INFORMATION
  Report Type: 
  Country: None (occurrence: None)
  Receive Date: 20090727
  Receipt Date: 20090713
  Transmission Date: 20100115
  Serious: Yes (Death)
  Sender: FDA-Public Use
  Company Number: 1-19149466

PATIENT
  Age: 63 Year
  Sex: Male
  Weight: 84.8226 kg

DRUGS (3)
  1. DOXYCYCLINE [Suspect]
     Indication: MYCOPLASMA INFECTION
     Dosage: 100 MG TWICE DAILY,
  2. LEVOFLOXACIN [Concomitant]
  3. NAPROXEN [Concomitant]

REACTIONS (3)
  - HEPATITIS FULMINANT [None]
  - RENAL FAILURE [None]
  - WEIGHT DECREASED [None]
